FAERS Safety Report 4849127-0 (Version None)
Quarter: 2005Q4

REPORT INFORMATION
  Report Type: 
  Country: None (occurrence: None)
  Receive Date: 20051209
  Receipt Date: 20051201
  Transmission Date: 20060501
  Serious: Yes (Hospitalization)
  Sender: FDA-Public Use
  Company Number: 2005BR00888

PATIENT
  Age: 23 Year
  Sex: Female
  Weight: 54 kg

DRUGS (2)
  1. AMOXICILLIN AND CLAVULANATE POTASSIUM [Suspect]
     Indication: TONSILLITIS
     Route: 048
     Dates: start: 20050321, end: 20050327
  2. CORTISONE ACETATE TAB [Concomitant]

REACTIONS (8)
  - CONDITION AGGRAVATED [None]
  - HYPERSENSITIVITY [None]
  - PHARYNGEAL OEDEMA [None]
  - PRURITUS [None]
  - RASH GENERALISED [None]
  - RASH MACULAR [None]
  - TONSILLITIS [None]
  - WEIGHT INCREASED [None]
